FAERS Safety Report 5463269-0 (Version None)
Quarter: 2007Q3

REPORT INFORMATION
  Report Type: 
  Country: None (occurrence: None)
  Receive Date: 20070920
  Receipt Date: 20070911
  Transmission Date: 20080115
  Serious: Yes (Other)
  Sender: FDA-Public Use
  Company Number: US-ALLERGAN-0710168US

PATIENT
  Sex: Male

DRUGS (3)
  1. OFLOXACIN [Suspect]
     Indication: DRUG USE FOR UNKNOWN INDICATION
     Dosage: UNK, Q1HR
     Route: 047
  2. VOLTAREN [Suspect]
     Indication: MACULAR OEDEMA
     Dosage: UNK, UNK
  3. DICLOFENAC (DSOS) [Suspect]
     Indication: MACULAR OEDEMA
     Dosage: UNK, BID

REACTIONS (2)
  - CORNEAL PERFORATION [None]
  - ULCERATIVE KERATITIS [None]
